FAERS Safety Report 9160782 (Version 2)
Quarter: 2013Q1

REPORT INFORMATION
  Report Type: Spontaneous
  Country: IT (occurrence: None)
  Receive Date: 20130220
  Receipt Date: 20130225
  Transmission Date: 20140127
  Serious: Yes (Hospitalization)
  Sender: FDA-Public Use
  Company Number: AUR-APL-2013-01431

PATIENT
  Age: 82 Year
  Sex: Male
  Weight: 40 kg

DRUGS (13)
  1. LEVOFLOXACIN (LEVOFLOXACIN) [Suspect]
     Indication: PNEUMONITIS
     Route: 048
     Dates: start: 20130124, end: 20130127
  2. TEFAMIN [Suspect]
     Indication: CHRONIC OBSTRUCTIVE PULMONARY DISEASE
     Route: 042
     Dates: start: 20130125, end: 20130127
  3. ROCEFIN (CEFTRIAXONE SODIUM) [Concomitant]
  4. URBASON (METHYLPREDNISOLONE) [Concomitant]
  5. LUVION (CARNENOIC ACID) [Concomitant]
  6. LASIX (FUROSEMIDE) [Concomitant]
  7. CASODEX (BICALUTAMIDE) [Concomitant]
  8. TACHIPIRINA (PARACETAMOL) [Concomitant]
  9. DUROGESIC (FENTANYL) [Concomitant]
  10. CLENIL (BECLOMETHASONE DIPROPIONATE) [Concomitant]
  11. BRONCOVALEAS (SALBUTAMOL) [Concomitant]
  12. SPIRIVA (TIOTROPIUM BROMIDE) [Concomitant]
  13. CALCIUM GLUCONATE (CALCIUM GLUCONATE) [Concomitant]

REACTIONS (2)
  - Epilepsy [None]
  - Electroencephalogram abnormal [None]
